FAERS Safety Report 9222575 (Version 1)
Quarter: 2013Q2

REPORT INFORMATION
  Report Type: Spontaneous
  Country: US (occurrence: US)
  Receive Date: 20130410
  Receipt Date: 20130410
  Transmission Date: 20140414
  Serious: No
  Sender: FDA-Public Use
  Company Number: US-PFIZER INC-2013113292

PATIENT
  Age: 61 Year
  Sex: Female
  Weight: 56.69 kg

DRUGS (8)
  1. LYRICA [Suspect]
     Indication: PAIN
     Dosage: 75 MG, 2X/DAY
     Dates: start: 20130327
  2. ACETYLSALICYLIC ACID [Concomitant]
     Indication: CARDIAC DISORDER
     Dosage: 81 MG, 1X/DAY
  3. AMLODIPINE [Concomitant]
     Indication: BLOOD PRESSURE ABNORMAL
     Dosage: 100 MG, 1X/DAY
  4. ALISKIREN/HYDROCHLOROTHIAZIDE [Concomitant]
     Indication: BLOOD PRESSURE ABNORMAL
     Dosage: 150/12.5 MG, 1X/DAY
  5. CYMBALTA [Concomitant]
     Indication: BACK PAIN
     Dosage: 90 MG, 1X/DAY
  6. CYMBALTA [Concomitant]
     Indication: DEPRESSION
  7. VALIUM [Concomitant]
     Indication: ANXIETY
     Dosage: 10 MG, AS NEEDED
  8. VALIUM [Concomitant]
     Indication: PANIC DISORDER

REACTIONS (2)
  - Middle insomnia [Unknown]
  - Memory impairment [Unknown]
